FAERS Safety Report 4908720-7 (Version None)
Quarter: 2006Q1

REPORT INFORMATION
  Report Type: 
  Country: None (occurrence: None)
  Receive Date: 20060210
  Receipt Date: 20051028
  Transmission Date: 20060701
  Serious: No
  Sender: FDA-Public Use
  Company Number: US-GLAXOSMITHKLINE-A0580146A

PATIENT
  Sex: Male

DRUGS (1)
  1. PAXIL CR [Suspect]
     Indication: DRUG USE FOR UNKNOWN INDICATION
     Dosage: 25MG PER DAY
     Route: 048
     Dates: start: 20051023, end: 20051001

REACTIONS (4)
  - ABNORMAL DREAMS [None]
  - DIZZINESS [None]
  - DRUG WITHDRAWAL SYNDROME [None]
  - PARAESTHESIA [None]
